FAERS Safety Report 25188618 (Version 2)
Quarter: 2025Q3

REPORT INFORMATION
  Report Type: Spontaneous
  Country: US (occurrence: US)
  Receive Date: 20250411
  Receipt Date: 20250816
  Transmission Date: 20251020
  Serious: No
  Sender: ALEXION PHARMACEUTICALS
  Company Number: US-AstraZeneca-CH-00842964AP

PATIENT

DRUGS (1)
  1. BREZTRI [Suspect]
     Active Substance: BUDESONIDE\FORMOTEROL\GLYCOPYRROLATE
     Route: 065

REACTIONS (10)
  - Malaise [Unknown]
  - Respiratory rate increased [Unknown]
  - Heart rate increased [Unknown]
  - Panic disorder [Unknown]
  - Condition aggravated [Unknown]
  - Device issue [Unknown]
  - Drug ineffective [Unknown]
  - Heart rate increased [Unknown]
  - Malaise [Unknown]
  - Product label confusion [Unknown]
